FAERS Safety Report 5260974-6 (Version None)
Quarter: 2007Q1

REPORT INFORMATION
  Report Type: 
  Country: None (occurrence: None)
  Receive Date: 20070309
  Receipt Date: 20070228
  Transmission Date: 20070707
  Serious: No
  Sender: FDA-Public Use
  Company Number: 2006UW07977

PATIENT
  Sex: Male
  Weight: 125 kg

DRUGS (6)
  1. SEROQUEL [Suspect]
     Indication: MENTAL DISORDER
     Route: 048
     Dates: start: 20020701, end: 20020705
  2. SEROQUEL [Suspect]
     Route: 048
     Dates: start: 20050501, end: 20060501
  3. ABILIFY [Concomitant]
  4. NAVANE [Concomitant]
     Dates: start: 20040101
  5. RISPERDAL [Concomitant]
     Dates: start: 19950101
  6. ZYPREXA [Concomitant]
     Dosage: 10-20 MG
     Dates: start: 19970101, end: 20040101

REACTIONS (1)
  - DIABETES MELLITUS [None]
